FAERS Safety Report 13890192 (Version 1)
Quarter: 2017Q3

REPORT INFORMATION
  Report Type: Spontaneous
  Country: GB (occurrence: GB)
  Receive Date: 20170822
  Receipt Date: 20170822
  Transmission Date: 20171127
  Serious: Yes (Hospitalization)
  Sender: FDA-Public Use
  Company Number: GB-NOVOPROD-547643

PATIENT
  Age: 9 Year
  Sex: Male
  Weight: 38.2 kg

DRUGS (3)
  1. NOVORAPID [Suspect]
     Active Substance: INSULIN ASPART
     Dosage: DOSE INCREASED
     Route: 058
  2. NOVORAPID [Suspect]
     Active Substance: INSULIN ASPART
     Indication: TYPE 1 DIABETES MELLITUS
     Dosage: UNK
     Route: 058
     Dates: start: 201507
  3. NOVORAPID [Suspect]
     Active Substance: INSULIN ASPART
     Dosage: 8.5 U, QD
     Route: 058
     Dates: start: 20170520, end: 20170521

REACTIONS (4)
  - Drug ineffective [Unknown]
  - Diabetic ketoacidosis [Recovered/Resolved]
  - Product leakage [Unknown]
  - Product container issue [Unknown]

NARRATIVE: CASE EVENT DATE: 20170520
